FAERS Safety Report 7793040-6 (Version None)
Quarter: 2011Q4

REPORT INFORMATION
  Report Type: 
  Country: None (occurrence: None)
  Receive Date: 20111003
  Receipt Date: 20110921
  Transmission Date: 20120403
  Serious: Yes (Hospitalization)
  Sender: FDA-Public Use
  Company Number: US-ACTELION-A-US2011-54619

PATIENT

DRUGS (2)
  1. TRACLEER [Suspect]
     Indication: PULMONARY ARTERIAL HYPERTENSION
     Dosage: UNK
     Route: 048
     Dates: start: 20110912
  2. CALCIUM CHANNEL BLOCKERS [Concomitant]

REACTIONS (6)
  - PALPITATIONS [None]
  - PRODUCTIVE COUGH [None]
  - ANGIOEDEMA [None]
  - OEDEMA PERIPHERAL [None]
  - CONSTIPATION [None]
  - DYSPNOEA [None]
